FAERS Safety Report 5312865-X (Version None)
Quarter: 2007Q2

REPORT INFORMATION
  Report Type: 
  Country: None (occurrence: None)
  Receive Date: 20070430
  Receipt Date: 20070420
  Transmission Date: 20071010
  Serious: Yes (Hospitalization)
  Sender: FDA-Public Use
  Company Number: FR-ABBOTT-07P-056-0359916-00

PATIENT
  Sex: Male
  Weight: 83 kg

DRUGS (2)
  1. KALETRA [Suspect]
     Indication: HIV INFECTION
     Route: 048
     Dates: start: 20060531, end: 20070218
  2. KALETRA [Suspect]
     Route: 048
     Dates: start: 20070221

REACTIONS (3)
  - ATRIOVENTRICULAR BLOCK [None]
  - CONVULSION [None]
  - SYNCOPE VASOVAGAL [None]
